FAERS Safety Report 6267294-1 (Version None)
Quarter: 2009Q3

REPORT INFORMATION
  Report Type: 
  Country: None (occurrence: None)
  Receive Date: 20090714
  Receipt Date: 20090701
  Transmission Date: 20100115
  Serious: Yes (Other)
  Sender: FDA-Public Use
  Company Number: US-PFIZER INC-2009235034

PATIENT
  Age: 5 Year
  Sex: Male
  Weight: 20 kg

DRUGS (1)
  1. GLIPIZIDE [Suspect]
     Dosage: 7.5 MG, 2X/DAY

REACTIONS (2)
  - DRUG DISPENSING ERROR [None]
  - HYPOGLYCAEMIA [None]
